FAERS Safety Report 17989777 (Version 1)
Quarter: 2020Q3

REPORT INFORMATION
  Report Type: Spontaneous
  Country: DE (occurrence: DE)
  Receive Date: 20200707
  Receipt Date: 20200707
  Transmission Date: 20201103
  Serious: Yes (Other)
  Sender: FDA-Public Use
  Company Number: DE-BAYER-2020-131183

PATIENT
  Age: 25 Year
  Sex: Female
  Weight: 74 kg

DRUGS (1)
  1. JAYDESS [Suspect]
     Active Substance: LEVONORGESTREL
     Dosage: 14 ?G PER DAY CONTINUOUSLY
     Route: 015
     Dates: start: 20200331

REACTIONS (3)
  - Major depression [None]
  - Mental disorder [None]
  - Malaise [None]

NARRATIVE: CASE EVENT DATE: 20200331
